FAERS Safety Report 8545486-6 (Version None)
Quarter: 2012Q3

REPORT INFORMATION
  Report Type: 
  Country: None (occurrence: None)
  Receive Date: 20120727
  Receipt Date: 20111121
  Transmission Date: 20120928
  Serious: No
  Sender: FDA-Public Use
  Company Number: US-ASTRAZENECA-2011SE68475

PATIENT
  Age: 76 Year
  Sex: Female
  Weight: 53.5 kg

DRUGS (4)
  1. SOTALOL HYDROCHLORIDE [Concomitant]
  2. PRADAXA [Concomitant]
  3. SEROQUEL [Suspect]
     Indication: ANXIETY
     Route: 048
     Dates: start: 20110906, end: 20111020
  4. SEROQUEL [Suspect]
     Indication: DEPRESSION
     Route: 048
     Dates: start: 20110906, end: 20111020

REACTIONS (6)
  - ABDOMINAL DISTENSION [None]
  - HEADACHE [None]
  - EYE PAIN [None]
  - OFF LABEL USE [None]
  - ABDOMINAL PAIN [None]
  - EAR PAIN [None]
